FAERS Safety Report 7526415-0 (Version None)
Quarter: 2011Q2

REPORT INFORMATION
  Report Type: 
  Country: None (occurrence: None)
  Receive Date: 20110606
  Receipt Date: 20110602
  Transmission Date: 20111010
  Serious: Yes (Hospitalization, Other)
  Sender: FDA-Public Use
  Company Number: US-PFIZER INC-2010116911

PATIENT
  Sex: Female
  Weight: 68 kg

DRUGS (4)
  1. DILANTIN [Suspect]
     Indication: CONVULSION
     Dosage: 100 MG, 3X/DAY
     Route: 048
     Dates: start: 20081007, end: 20081022
  2. DILANTIN [Suspect]
     Dosage: 100 MG, 3X/DAY
     Route: 042
     Dates: start: 20081007, end: 20081011
  3. MACROBID [Concomitant]
     Indication: URINARY TRACT INFECTION
     Dosage: UNK
     Dates: start: 20081021, end: 20081024
  4. DILANTIN [Suspect]
     Dosage: 300 MG AT BED TIME
     Route: 048
     Dates: start: 20081017, end: 20081023

REACTIONS (1)
  - STEVENS-JOHNSON SYNDROME [None]
